FAERS Safety Report 7938284-5 (Version None)
Quarter: 2011Q4

REPORT INFORMATION
  Report Type: 
  Country: None (occurrence: None)
  Receive Date: 20111123
  Receipt Date: 20111116
  Transmission Date: 20120403
  Serious: Yes (Other)
  Sender: FDA-Public Use
  Company Number: CA-JNJFOC-20111107503

PATIENT
  Sex: Male
  Weight: 86.8 kg

DRUGS (1)
  1. REMICADE [Suspect]
     Indication: CROHN'S DISEASE
     Dosage: TOTAL OF 9 INFLIXIMAB INFUSIONS
     Dates: start: 20101012

REACTIONS (1)
  - MENISCUS REMOVAL [None]
